FAERS Safety Report 8171387-1 (Version None)
Quarter: 2012Q1

REPORT INFORMATION
  Report Type: 
  Country: None (occurrence: None)
  Receive Date: 20120104
  Receipt Date: 20110929
  Transmission Date: 20120608
  Serious: No
  Sender: FDA-Public Use
  Company Number: 2011HGS-002596

PATIENT
  Age: 30 Year
  Sex: Female
  Weight: 52.1637 kg

DRUGS (7)
  1. BENLYSTA [Suspect]
     Indication: SYSTEMIC LUPUS ERYTHEMATOSUS
     Dosage: 10 MG/KG, 1 IN 2 WK, INTRAVENOUS DRIP
     Route: 041
     Dates: start: 20110921, end: 20110921
  2. VICODIN [Concomitant]
  3. VITAMIN D (ERGOCACIFEROL) [Concomitant]
  4. PLAQUENIL [Concomitant]
  5. IMURAN [Concomitant]
  6. VALIUM [Concomitant]
  7. PREDNISONE TAB [Concomitant]

REACTIONS (6)
  - BURNING SENSATION [None]
  - MUSCLE TWITCHING [None]
  - TINNITUS [None]
  - HEADACHE [None]
  - BLOOD PRESSURE INCREASED [None]
  - VISION BLURRED [None]
